FAERS Safety Report 12086284 (Version 1)
Quarter: 2016Q1

REPORT INFORMATION
  Report Type: Spontaneous
  Country: US (occurrence: US)
  Receive Date: 20160217
  Receipt Date: 20160217
  Transmission Date: 20160526
  Serious: No
  Sender: FDA-Public Use
  Company Number: US-ALLERGAN-1511379US

PATIENT
  Age: 83 Year
  Sex: Male

DRUGS (1)
  1. RESTASIS [Suspect]
     Active Substance: CYCLOSPORINE
     Indication: DRY EYE
     Dosage: 1-2 DROPS TO EACH EYE TWICE DAILY
     Route: 047
     Dates: start: 20150610

REACTIONS (1)
  - Drug ineffective [Unknown]
